FAERS Safety Report 25627374 (Version 1)
Quarter: 2025Q3

REPORT INFORMATION
  Report Type: Spontaneous
  Country: US (occurrence: None)
  Receive Date: 20250730
  Receipt Date: 20250730
  Transmission Date: 20251020
  Serious: Yes (Hospitalization)
  Sender: FDA-CTU
  Company Number: None

PATIENT
  Age: 76 Year
  Sex: Female

DRUGS (4)
  1. ENVARSUS XR [Suspect]
     Active Substance: TACROLIMUS
     Indication: Renal transplant
     Dosage: 2 MG DAILY ORAL
     Route: 048
  2. MYCOPHENOLIC ACID [Suspect]
     Active Substance: MYCOPHENOLIC ACID
     Indication: Renal transplant
     Dosage: 540 MG TWICE A DAY
  3. valgancyclovir 450 mg tablet [Concomitant]
  4. Cranberry 450 mg tablet [Concomitant]

REACTIONS (3)
  - Balance disorder [None]
  - Eye contusion [None]
  - Head injury [None]

NARRATIVE: CASE EVENT DATE: 20250702
